FAERS Safety Report 5719486-5 (Version None)
Quarter: 2008Q2

REPORT INFORMATION
  Report Type: 
  Country: None (occurrence: None)
  Receive Date: 20080428
  Receipt Date: 20080428
  Transmission Date: 20081010
  Serious: Yes (Hospitalization, Other)
  Sender: FDA-Public Use
  Company Number: None

PATIENT
  Age: 63 Year
  Sex: Male
  Weight: 68.0396 kg

DRUGS (1)
  1. HEPARIN LOCK-FLUSH [Suspect]
     Indication: CENTRAL VENOUS CATHETERISATION
     Dosage: 10 ML DAILY IV
     Route: 042
     Dates: start: 20071120, end: 20080421

REACTIONS (4)
  - BLOOD DISORDER [None]
  - CONVULSION [None]
  - HYPERSENSITIVITY [None]
  - INFECTION [None]
